FAERS Safety Report 16137451 (Version 1)
Quarter: 2019Q1

REPORT INFORMATION
  Report Type: Spontaneous
  Country: NL (occurrence: NL)
  Receive Date: 20190330
  Receipt Date: 20190330
  Transmission Date: 20190418
  Serious: Yes (Other)
  Sender: FDA-Public Use
  Company Number: NL-AUROBINDO-AUR-APL-2019-016992

PATIENT

DRUGS (2)
  1. CARBOPLATIN. [Suspect]
     Active Substance: CARBOPLATIN
     Indication: NON-SMALL CELL LUNG CANCER STAGE IV
     Dosage: 180 MILLIGRAM, CYCLICAL
     Route: 065
  2. PEMETREXED. [Suspect]
     Active Substance: PEMETREXED
     Indication: NON-SMALL CELL LUNG CANCER STAGE IV
     Dosage: 250 MILLIGRAM, CYCLICAL
     Route: 065

REACTIONS (9)
  - Neutrophil count decreased [Recovered/Resolved]
  - Upper respiratory tract infection [Unknown]
  - White blood cell count decreased [Recovered/Resolved]
  - Fatigue [Unknown]
  - Platelet count decreased [Recovered/Resolved]
  - Off label use [Unknown]
  - Hypogeusia [Unknown]
  - Drug level increased [Recovered/Resolved]
  - Neuropathy peripheral [Unknown]
